FAERS Safety Report 21530943 (Version 2)
Quarter: 2023Q1

REPORT INFORMATION
  Report Type: Spontaneous
  Country: US (occurrence: US)
  Receive Date: 20221031
  Receipt Date: 20230124
  Transmission Date: 20230418
  Serious: No
  Sender: FDA-Public Use
  Company Number: US-SA-SAC20221025001260

PATIENT
  Sex: Female

DRUGS (1)
  1. DUPIXENT [Suspect]
     Active Substance: DUPILUMAB
     Dosage: 300 MG, OTHER
     Route: 058

REACTIONS (7)
  - Injection site discomfort [Unknown]
  - Ocular discomfort [Unknown]
  - Vision blurred [Unknown]
  - Eye swelling [Unknown]
  - Eye pruritus [Unknown]
  - Injection site pain [Unknown]
  - Dry eye [Unknown]
